FAERS Safety Report 26131464 (Version 1)
Quarter: 2025Q4

REPORT INFORMATION
  Report Type: Spontaneous
  Country: US (occurrence: None)
  Receive Date: 20251205
  Receipt Date: 20251205
  Transmission Date: 20260119
  Serious: No
  Sender: FDA-CTU
  Company Number: None

PATIENT
  Sex: Female

DRUGS (3)
  1. HYRIMOZ [Suspect]
     Active Substance: ADALIMUMAB-ADAZ
     Indication: Rheumatoid arthritis
     Dosage: OTHER FREQUENCY : EVERY 14 DAYS;
     Route: 058
     Dates: start: 20251129
  2. HYRIMOZ [Suspect]
     Active Substance: ADALIMUMAB-ADAZ
     Indication: Rheumatoid factor positive
  3. HYRIMOZ [Suspect]
     Active Substance: ADALIMUMAB-ADAZ
     Indication: Polyarthritis

REACTIONS (6)
  - Paraesthesia [None]
  - Paraesthesia [None]
  - Nausea [None]
  - Hyperhidrosis [None]
  - Diarrhoea [None]
  - Drug ineffective [None]
